FAERS Safety Report 5453657-0 (Version None)
Quarter: 2007Q3

REPORT INFORMATION
  Report Type: 
  Country: None (occurrence: None)
  Receive Date: 20070917
  Receipt Date: 20070910
  Transmission Date: 20080115
  Serious: Yes (Life-Threatening)
  Sender: FDA-Public Use
  Company Number: PHHO2007FR07469

PATIENT
  Age: 14 Year
  Sex: Male
  Weight: 54.5 kg

DRUGS (3)
  1. ZOLEDRONIC ACID [Suspect]
     Indication: BONE SARCOMA
     Dosage: 4MG
     Route: 042
     Dates: start: 20070427, end: 20070427
  2. CALCIUM [Concomitant]
  3. VITAMIN D [Concomitant]

REACTIONS (5)
  - ELECTROCARDIOGRAM QT PROLONGED [None]
  - HYPOCALCAEMIA [None]
  - HYPOKALAEMIA [None]
  - HYPONATRAEMIA [None]
  - PARAESTHESIA [None]
